FAERS Safety Report 7769435-3 (Version None)
Quarter: 2011Q3

REPORT INFORMATION
  Report Type: 
  Country: None (occurrence: None)
  Receive Date: 20110922
  Receipt Date: 20110204
  Transmission Date: 20111222
  Serious: No
  Sender: FDA-Public Use
  Company Number: US-ASTRAZENECA-2011SE06453

PATIENT
  Age: 43 Year
  Sex: Male
  Weight: 95.3 kg

DRUGS (1)
  1. SEROQUEL XR [Suspect]
     Indication: BIPOLAR DISORDER
     Route: 048
     Dates: start: 20080101, end: 20110101

REACTIONS (5)
  - TREMOR [None]
  - HEADACHE [None]
  - DRUG DOSE OMISSION [None]
  - NAUSEA [None]
  - AMNESIA [None]
